FAERS Safety Report 25622711 (Version 1)
Quarter: 2025Q3

REPORT INFORMATION
  Report Type: Spontaneous
  Country: CN (occurrence: CN)
  Receive Date: 20250730
  Receipt Date: 20250730
  Transmission Date: 20251021
  Serious: Yes (Hospitalization, Other)
  Sender: SLATE RUN
  Company Number: CN-SLATERUN-2025SRLIT00112

PATIENT
  Age: 6 Decade
  Sex: Male

DRUGS (2)
  1. VANCOMYCIN [Suspect]
     Active Substance: VANCOMYCIN
     Indication: Antibiotic prophylaxis
     Route: 035
  2. VANCOMYCIN [Suspect]
     Active Substance: VANCOMYCIN
     Indication: Drug therapy
     Route: 057

REACTIONS (2)
  - Retinal artery occlusion [Recovered/Resolved]
  - Incorrect route of product administration [Unknown]
